FAERS Safety Report 16474994 (Version 1)
Quarter: 2019Q2

REPORT INFORMATION
  Report Type: Report from Study
  Country: US (occurrence: US)
  Receive Date: 20190625
  Receipt Date: 20190625
  Transmission Date: 20190711
  Serious: Yes (Death)
  Sender: FDA-Public Use
  Company Number: US-TAIHO ONCOLOGY  INC-EU-2019-02077

PATIENT
  Age: 64 Year
  Sex: Male

DRUGS (5)
  1. FUROSEMIDE. [Concomitant]
     Active Substance: FUROSEMIDE
     Dates: start: 20190506
  2. LONSURF [Suspect]
     Active Substance: TIPIRACIL HYDROCHLORIDE\TRIFLURIDINE
     Indication: RECTAL CANCER
     Dosage: ONE 15MG TAB AND THREE 20MG TABS.?CURRENT CYCLE UNKNOWN.
     Route: 048
     Dates: start: 20190426
  3. SPIRONOLACTONE. [Concomitant]
     Active Substance: SPIRONOLACTONE
     Dates: start: 20190430
  4. XARELTO [Concomitant]
     Active Substance: RIVAROXABAN
     Dates: start: 20181106
  5. LACTULOSE. [Concomitant]
     Active Substance: LACTULOSE
     Dosage: SOL 10GM/15
     Dates: start: 20190610

REACTIONS (1)
  - Death [Fatal]

NARRATIVE: CASE EVENT DATE: 20190613
